FAERS Safety Report 9285150 (Version 1)
Quarter: 2013Q2

REPORT INFORMATION
  Report Type: Spontaneous
  Country: US (occurrence: US)
  Receive Date: 20130513
  Receipt Date: 20130513
  Transmission Date: 20140414
  Serious: Yes (Hospitalization, Other)
  Sender: FDA-Public Use
  Company Number: US-AMGEN-USASP2013032530

PATIENT
  Age: 54 Year
  Sex: Female

DRUGS (12)
  1. ENBREL [Suspect]
     Indication: PRODUCT USED FOR UNKNOWN INDICATION
     Dosage: UNK
  2. HUMIRA [Suspect]
     Indication: RHEUMATOID ARTHRITIS
     Dosage: 40 MG, 1 IN 10 D
     Route: 058
     Dates: start: 2007
  3. CYMBALTA [Concomitant]
     Dosage: UNK
  4. CYCLOBENZAPRINE [Concomitant]
     Dosage: UNK
  5. ZOLPIDEM [Concomitant]
     Dosage: UNK
  6. CALCIUM PLUS D3 [Concomitant]
     Dosage: UNK
  7. MAGNESIUM [Concomitant]
     Indication: MINERAL SUPPLEMENTATION
     Dosage: UNK
  8. POTASSIUM [Concomitant]
     Dosage: UNK
  9. ZINC [Concomitant]
     Dosage: UNK
  10. VITAMIN B COMPLEX [Concomitant]
     Indication: VITAMIN SUPPLEMENTATION
     Dosage: UNK
  11. VITAMIN B12 NOS [Concomitant]
     Indication: VITAMIN SUPPLEMENTATION
     Dosage: UNK
  12. VITAMIN D /00107901/ [Concomitant]
     Indication: VITAMIN SUPPLEMENTATION
     Dosage: UNK

REACTIONS (3)
  - Foreign body [Recovered/Resolved]
  - Staphylococcal infection [Recovered/Resolved]
  - Sinusitis [Unknown]
